FAERS Safety Report 20503968 (Version 1)
Quarter: 2022Q1

REPORT INFORMATION
  Report Type: Spontaneous
  Country: NO (occurrence: NO)
  Receive Date: 20220222
  Receipt Date: 20220222
  Transmission Date: 20220423
  Serious: Yes (Death)
  Sender: FDA-Public Use
  Company Number: None

PATIENT
  Age: 93 Year
  Sex: Female

DRUGS (11)
  1. RISPERIDONE [Suspect]
     Active Substance: RISPERIDONE
     Indication: Neuropsychiatric symptoms
     Dosage: 0.25 MG, Q12H
     Route: 048
     Dates: start: 20211228, end: 20211230
  2. SODIUM PICOSULFATE [Concomitant]
     Active Substance: SODIUM PICOSULFATE
     Indication: Constipation
     Dosage: 10 DOSAGE FORM, Q12H
     Route: 048
     Dates: start: 20210818, end: 20220103
  3. ACETAMINOPHEN [Concomitant]
     Active Substance: ACETAMINOPHEN
     Indication: Pain
     Dosage: 1 G, Q12H
     Route: 048
     Dates: start: 20210923, end: 20220103
  4. ASPIRIN\MAGNESIUM OXIDE [Concomitant]
     Active Substance: ASPIRIN\MAGNESIUM OXIDE
     Indication: Cardiovascular disorder
     Dosage: 75 MG, Q24H
     Route: 048
     Dates: start: 20210923, end: 20220103
  5. FENTANYL [Concomitant]
     Active Substance: FENTANYL
     Indication: Pain
     Dosage: CHANGE PATCH EVERY 3. DAY
     Route: 062
     Dates: start: 20211216
  6. MORFIN ABCUR [Concomitant]
     Indication: Pain
     Dosage: 2.5 MG SUBCUTANEOUS UP TO 6 TIMES A DAY.
     Route: 058
     Dates: start: 20211231
  7. MORFIN ABCUR [Concomitant]
     Dosage: 2.5 MG - 10 MG SUBCUTANEOUS UP TO EVERY 30 MINUTES, AS NEEDED.
     Route: 058
     Dates: start: 20220103
  8. OXYCODONE HYDROCHLORIDE [Concomitant]
     Active Substance: OXYCODONE HYDROCHLORIDE
     Indication: Pain
     Dosage: 5 MG, Q24H
     Route: 048
     Dates: start: 20211129, end: 20220103
  9. MIDAZOLAM [Concomitant]
     Active Substance: MIDAZOLAM
     Indication: Palliative sedation
     Dosage: 1 MG SUBCUTANEOUS UP TO 6 TIMES A DAY
     Route: 058
     Dates: start: 20211231, end: 20220103
  10. MIDAZOLAM [Concomitant]
     Active Substance: MIDAZOLAM
     Dosage: 1-2 MG SUBCUTANEOUS UP TO EVERY 30 MINUTES
     Route: 058
     Dates: start: 20220103
  11. ARTELAC [Concomitant]
     Indication: Dry eye
     Dosage: 1 DOSAGE FORM, Q12H
     Route: 047
     Dates: start: 20211021, end: 20220103

REACTIONS (8)
  - Pyrexia [Fatal]
  - Hypotension [Fatal]
  - Vomiting [Fatal]
  - Somnolence [Fatal]
  - Nausea [Fatal]
  - General physical health deterioration [Fatal]
  - C-reactive protein increased [Fatal]
  - Fatigue [Fatal]

NARRATIVE: CASE EVENT DATE: 20211230
